FAERS Safety Report 4727278-9 (Version None)
Quarter: 2005Q3

REPORT INFORMATION
  Report Type: 
  Country: None (occurrence: None)
  Receive Date: 20050726
  Receipt Date: 20050713
  Transmission Date: 20060218
  Serious: Yes (Other)
  Sender: FDA-Public Use
  Company Number: 2005102131

PATIENT
  Sex: Female

DRUGS (2)
  1. DILANTIN [Suspect]
     Indication: GRAND MAL CONVULSION
     Dosage: ORAL
     Route: 048
  2. DETROL [Suspect]
     Indication: BLADDER DISORDER
     Dosage: ORAL
     Route: 048

REACTIONS (4)
  - BLADDER DISORDER [None]
  - CONVULSION [None]
  - DIZZINESS [None]
  - MIGRAINE [None]
